FAERS Safety Report 4456028-9 (Version None)
Quarter: 2004Q3

REPORT INFORMATION
  Report Type: 
  Country: None (occurrence: None)
  Receive Date: 20040831
  Receipt Date: 20040715
  Transmission Date: 20050211
  Serious: No
  Sender: FDA-Public Use
  Company Number: FABR-10675

PATIENT
  Age: 45 Year
  Sex: Male
  Weight: 70 kg

DRUGS (1)
  1. FABRAZYME [Suspect]
     Indication: FABRY'S DISEASE
     Dosage: 70 MG Q2WKS IV
     Route: 042
     Dates: start: 20030825

REACTIONS (1)
  - INFUSION SITE REACTION [None]
